FAERS Safety Report 13897666 (Version 1)
Quarter: 2017Q3

REPORT INFORMATION
  Report Type: Spontaneous
  Country: CH (occurrence: CH)
  Receive Date: 20170823
  Receipt Date: 20170823
  Transmission Date: 20171127
  Serious: Yes (Hospitalization, Other)
  Sender: FDA-Public Use
  Company Number: CH-JNJFOC-20170820028

PATIENT
  Age: 21 Year
  Sex: Female

DRUGS (8)
  1. TRAMAL [Suspect]
     Active Substance: TRAMADOL
     Indication: HEADACHE
     Route: 048
     Dates: start: 20170122, end: 20170122
  2. VENLAFAXIN [Interacting]
     Active Substance: VENLAFAXINE HYDROCHLORIDE
     Indication: PRODUCT USED FOR UNKNOWN INDICATION
     Route: 048
     Dates: start: 20170122, end: 20170123
  3. RELPAX [Suspect]
     Active Substance: ELETRIPTAN HYDROBROMIDE
     Indication: PRODUCT USED FOR UNKNOWN INDICATION
     Route: 048
     Dates: start: 20170122, end: 20170122
  4. IRFEN [Suspect]
     Active Substance: IBUPROFEN
     Indication: PRODUCT USED FOR UNKNOWN INDICATION
     Route: 048
     Dates: start: 20170122, end: 20170122
  5. SIRDALUD [Suspect]
     Active Substance: TIZANIDINE
     Indication: PRODUCT USED FOR UNKNOWN INDICATION
     Route: 048
     Dates: start: 20170122, end: 20170122
  6. DULOXETINE. [Interacting]
     Active Substance: DULOXETINE
     Indication: PRODUCT USED FOR UNKNOWN INDICATION
     Route: 048
     Dates: start: 20170122, end: 20170122
  7. TRAMAL [Suspect]
     Active Substance: TRAMADOL
     Indication: HEADACHE
     Route: 048
  8. DAFALGAN [Suspect]
     Active Substance: ACETAMINOPHEN
     Indication: PRODUCT USED FOR UNKNOWN INDICATION
     Route: 048
     Dates: start: 20170122, end: 20170122

REACTIONS (9)
  - Chills [Recovered/Resolved]
  - Confusional state [Recovered/Resolved]
  - Suicide attempt [Recovered/Resolved]
  - Drug interaction [Recovered/Resolved]
  - Mydriasis [Recovered/Resolved]
  - Serotonin syndrome [Recovered/Resolved]
  - Somnolence [Recovered/Resolved]
  - Eyelid myoclonus [Recovered/Resolved]
  - Intentional overdose [Recovered/Resolved]

NARRATIVE: CASE EVENT DATE: 20170122
